FAERS Safety Report 14673704 (Version 1)
Quarter: 2018Q1

REPORT INFORMATION
  Report Type: Spontaneous
  Country: US (occurrence: US)
  Receive Date: 20180322
  Receipt Date: 20180322
  Transmission Date: 20180509
  Serious: Yes (Death)
  Sender: FDA-Public Use
  Company Number: None

PATIENT
  Sex: Female

DRUGS (8)
  1. FUROSEMIDE 20MG [Concomitant]
     Active Substance: FUROSEMIDE
  2. HYDROMORPHONE 2MG [Concomitant]
  3. LEVETIRACETAM 500MG [Concomitant]
     Active Substance: LEVETIRACETAM
  4. HYDROCODONE/APAP 5/325MG [Concomitant]
  5. SPIRINOLACTONE 50MG [Concomitant]
  6. SUTENT [Suspect]
     Active Substance: SUNITINIB MALATE
     Indication: RENAL CELL CARCINOMA
     Route: 048
     Dates: start: 20171229
  7. OCTREOTIDE. [Suspect]
     Active Substance: OCTREOTIDE
     Indication: NEOPLASM MALIGNANT
     Route: 058
     Dates: start: 20151225
  8. DIPHENOXYLATE/ATROPINE 2.5MG [Concomitant]

REACTIONS (1)
  - Death [None]
